FAERS Safety Report 17841858 (Version 3)
Quarter: 2020Q3

REPORT INFORMATION
  Report Type: Spontaneous
  Country: RU (occurrence: RU)
  Receive Date: 20200529
  Receipt Date: 20200710
  Transmission Date: 20201103
  Serious: No
  Sender: FDA-Public Use
  Company Number: RU-009507513-2005RUS007908

PATIENT
  Sex: Female

DRUGS (4)
  1. FOLLITROPIN BETA [Suspect]
     Active Substance: FOLLITROPIN
     Indication: IN VITRO FERTILISATION
     Dosage: 150?200 INTERNATIONAL UNIT
  2. GANIRELIX ACETATE. [Suspect]
     Active Substance: GANIRELIX ACETATE
     Indication: IN VITRO FERTILISATION
     Dosage: 0.25 MILLIGRAM PER DAY IN THE EVENING
  3. CHORIOGONADOTROPIN ALFA [Suspect]
     Active Substance: CHORIOGONADOTROPIN ALFA
     Indication: IN VITRO FERTILISATION
     Dosage: 1000 INTERNATIONAL UNIT
  4. PROGESTERONE. [Suspect]
     Active Substance: PROGESTERONE
     Indication: IN VITRO FERTILISATION
     Dosage: 600 MILLIGRAM, QD
     Route: 067

REACTIONS (1)
  - Maternal exposure before pregnancy [Recovered/Resolved]
